FAERS Safety Report 17934702 (Version 1)
Quarter: 2020Q2

REPORT INFORMATION
  Report Type: Spontaneous
  Country: US (occurrence: US)
  Receive Date: 20200623
  Receipt Date: 20200623
  Transmission Date: 20200714
  Serious: No
  Sender: FDA-Public Use
  Company Number: None

PATIENT
  Age: 30 Year
  Sex: Female
  Weight: 67.5 kg

DRUGS (8)
  1. DEXCOM G6 [Concomitant]
  2. VITAMIN D [Concomitant]
     Active Substance: VITAMIN D NOS
  3. T SLIM INSULIN PUMP [Concomitant]
  4. VITAMIN C [Concomitant]
     Active Substance: ASCORBIC ACID
  5. HUMALOG [Concomitant]
     Active Substance: INSULIN LISPRO
  6. MAGNESIUM [Concomitant]
     Active Substance: MAGNESIUM
  7. VITAMIN G6 [Concomitant]
  8. BAQSIMI [Suspect]
     Active Substance: GLUCAGON
     Indication: BLOOD GLUCOSE DECREASED
     Dates: start: 20200623

REACTIONS (9)
  - Panic reaction [None]
  - Shock [None]
  - Eye pain [None]
  - Nausea [None]
  - Application site pain [None]
  - Rhinalgia [None]
  - Headache [None]
  - Sinus pain [None]
  - Teething [None]

NARRATIVE: CASE EVENT DATE: 20200623
